FAERS Safety Report 21374799 (Version 1)
Quarter: 2022Q3

REPORT INFORMATION
  Report Type: Spontaneous
  Country: US (occurrence: US)
  Receive Date: 20220926
  Receipt Date: 20220926
  Transmission Date: 20221027
  Serious: No
  Sender: FDA-Public Use
  Company Number: US-ALLERGAN-2219407US

PATIENT

DRUGS (2)
  1. LEXAPRO [Suspect]
     Active Substance: ESCITALOPRAM OXALATE
     Indication: Anxiety
     Dosage: ACTUAL: 10 MG, 10 MG DAILY, FOR 1 DAY
     Dates: start: 202205
  2. LEXAPRO [Suspect]
     Active Substance: ESCITALOPRAM OXALATE
     Dosage: ACTUAL: 5 MG, 5 MG DAILY
     Dates: start: 202105, end: 202105

REACTIONS (4)
  - Nervousness [Unknown]
  - Hyperhidrosis [Unknown]
  - Constipation [Unknown]
  - Musculoskeletal chest pain [Unknown]

NARRATIVE: CASE EVENT DATE: 20220501
